FAERS Safety Report 5047653-5 (Version None)
Quarter: 2006Q2

REPORT INFORMATION
  Report Type: 
  Country: None (occurrence: None)
  Receive Date: 20060601
  Receipt Date: 20060330
  Transmission Date: 20061013
  Serious: No
  Sender: FDA-Public Use
  Company Number: US200602002499

PATIENT
  Age: 53 Year
  Sex: Female
  Weight: 54.4 kg

DRUGS (1)
  1. CYMBALTA [Suspect]
     Indication: NEURALGIA
     Dosage: SEE IMAGE

REACTIONS (2)
  - DYSPNOEA [None]
  - SOMNOLENCE [None]
